FAERS Safety Report 8725113 (Version 2)
Quarter: 2012Q4

REPORT INFORMATION
  Report Type: 
  Country: AR (occurrence: AR)
  Receive Date: 20120815
  Receipt Date: 20121015
  Transmission Date: 20130627
  Serious: Yes (Other)
  Sender: FDA-Public Use
  Company Number: AR-GLAXOSMITHKLINE-A0989434A

PATIENT
  Age: 35 Year
  Sex: Female

DRUGS (4)
  1. ACITRETIN [Suspect]
     Indication: PSORIASIS
     Dosage: 25MG Twice per day
     Route: 048
     Dates: end: 20120731
  2. AMOXICILLIN [Suspect]
     Indication: PHARYNGITIS
  3. NSAIDS [Concomitant]
  4. ORAL CONTRACEPTIVE [Concomitant]
     Indication: CONTRACEPTION
     Route: 048

REACTIONS (4)
  - Abortion spontaneous [Recovered/Resolved]
  - Vaginal haemorrhage [Recovered/Resolved]
  - Uterine dilation and curettage [Recovered/Resolved]
  - Exposure during pregnancy [Unknown]
